FAERS Safety Report 4785373-2 (Version None)
Quarter: 2005Q4

REPORT INFORMATION
  Report Type: 
  Country: None (occurrence: None)
  Receive Date: 20051003
  Receipt Date: 20050707
  Transmission Date: 20060501
  Serious: Yes (Hospitalization)
  Sender: FDA-Public Use
  Company Number: BE-BRISTOL-MYERS SQUIBB COMPANY-13030861

PATIENT
  Age: 58 Year
  Sex: Female

DRUGS (3)
  1. COAPROVEL TABS 300MG/12.5MG [Suspect]
     Indication: HYPERTENSION
     Route: 048
     Dates: start: 20050422, end: 20050101
  2. EMCONCOR [Concomitant]
     Route: 048
     Dates: start: 20030101
  3. AMARYL [Concomitant]
     Indication: DIABETES MELLITUS
     Route: 048
     Dates: start: 20040101

REACTIONS (8)
  - DISCOMFORT [None]
  - DRY MOUTH [None]
  - HYPERAESTHESIA [None]
  - HYPERVENTILATION [None]
  - PARAESTHESIA ORAL [None]
  - SKIN TIGHTNESS [None]
  - SPEECH DISORDER [None]
  - SWOLLEN TONGUE [None]
